FAERS Safety Report 17637890 (Version 1)
Quarter: 2020Q2

REPORT INFORMATION
  Report Type: Spontaneous
  Country: US (occurrence: US)
  Receive Date: 20200407
  Receipt Date: 20200407
  Transmission Date: 20200713
  Serious: Yes (Hospitalization, Other)
  Sender: FDA-Public Use
  Company Number: US-009507513-2004USA001074

PATIENT
  Age: 68 Year
  Sex: Female

DRUGS (7)
  1. TRAMADOL HYDROCHLORIDE. [Suspect]
     Active Substance: TRAMADOL HYDROCHLORIDE
     Dosage: 50 MILLIGRAM, BID
     Route: 048
  2. DEXTROMETHORPHAN (+) GUAIFENESIN [Suspect]
     Active Substance: DEXTROMETHORPHAN\GUAIFENESIN
     Indication: UPPER RESPIRATORY TRACT INFECTION
     Dosage: UNK
  3. LAMOTRIGINE. [Suspect]
     Active Substance: LAMOTRIGINE
     Dosage: 200 MILLIGRAM, QD
     Route: 048
  4. REMERON [Suspect]
     Active Substance: MIRTAZAPINE
     Dosage: 45 MILLIGRAM, HS
     Route: 048
  5. GABAPENTIN. [Suspect]
     Active Substance: GABAPENTIN
     Dosage: 1200 MG 3 TIMES/D (3600 MG TOTAL)
     Route: 048
  6. TRAZODONE HYDROCHLORIDE. [Suspect]
     Active Substance: TRAZODONE HYDROCHLORIDE
     Dosage: 350 MILLIGRAM, HS
     Route: 048
  7. DULOXETINE HYDROCHLORIDE. [Suspect]
     Active Substance: DULOXETINE HYDROCHLORIDE
     Dosage: 60 MILLIGRAM, BID
     Route: 048

REACTIONS (1)
  - Serotonin syndrome [Recovering/Resolving]
